FAERS Safety Report 9219479 (Version 2)
Quarter: 2013Q2

REPORT INFORMATION
  Report Type: Spontaneous
  Country: US (occurrence: US)
  Receive Date: 20130409
  Receipt Date: 20130610
  Transmission Date: 20140414
  Serious: No
  Sender: FDA-Public Use
  Company Number: US-PFIZER INC-2013111099

PATIENT
  Age: 75 Year
  Sex: Female

DRUGS (10)
  1. XELJANZ [Suspect]
     Indication: RHEUMATOID ARTHRITIS
     Dosage: 5 MG, TWICE A DAY
     Dates: start: 20130103
  2. XELJANZ [Suspect]
     Dosage: UNK
     Route: 048
     Dates: start: 20121216, end: 20130521
  3. ATENOLOL [Concomitant]
     Dosage: 25 MG, UNK
  4. VYTORIN [Concomitant]
     Dosage: EZETIMIBE (10), SIMVASTATIN (40)
  5. COUMADINE [Concomitant]
     Dosage: UNK
  6. VESICARE [Concomitant]
     Dosage: 5 MG, UNK
  7. OMEPRAZOLE [Concomitant]
     Dosage: 40 MG, UNK
  8. LASIX [Concomitant]
     Dosage: 20 MG, UNK
  9. CELEBREX [Concomitant]
     Dosage: 200 MG, UNK
  10. MEDROL [Concomitant]
     Dosage: 4 MG, UNK

REACTIONS (2)
  - Dysgeusia [Unknown]
  - Dry mouth [Recovered/Resolved]
